FAERS Safety Report 13509538 (Version 2)
Quarter: 2017Q3

REPORT INFORMATION
  Report Type: Spontaneous
  Country: US (occurrence: US)
  Receive Date: 20170503
  Receipt Date: 20170803
  Transmission Date: 20171127
  Serious: No
  Sender: FDA-Public Use
  Company Number: US-SA-2017SA036516

PATIENT
  Sex: Female

DRUGS (15)
  1. OMEGA-3 ACIDS [Concomitant]
     Active Substance: OMEGA-3 FATTY ACIDS
     Dosage: 1000MG
     Route: 065
  2. PREVALITE [Concomitant]
     Active Substance: CHOLESTYRAMINE
     Dosage: POW 4GM PK
     Route: 065
  3. TERBINAFINE. [Concomitant]
     Active Substance: TERBINAFINE
     Dosage: 250MG
     Route: 065
  4. PRALUENT [Suspect]
     Active Substance: ALIROCUMAB
     Indication: TYPE IIA HYPERLIPIDAEMIA
     Route: 058
     Dates: start: 20170110
  5. ALIROCUMAB PREFILLED PEN [Concomitant]
     Active Substance: ALIROCUMAB
     Indication: TYPE IIA HYPERLIPIDAEMIA
     Dates: start: 20170110
  6. PRALUENT [Suspect]
     Active Substance: ALIROCUMAB
     Indication: TYPE IIA HYPERLIPIDAEMIA
     Route: 058
     Dates: start: 20170406
  7. LEVOTHYROXINE. [Concomitant]
     Active Substance: LEVOTHYROXINE
     Dosage: 50MCG
     Route: 065
  8. WELCHOL [Concomitant]
     Active Substance: COLESEVELAM HYDROCHLORIDE
     Dosage: PAK 3.75GM
     Route: 065
  9. AMLODIPINE [Concomitant]
     Active Substance: AMLODIPINE BESYLATE
     Route: 065
  10. ALIROCUMAB PREFILLED PEN [Concomitant]
     Active Substance: ALIROCUMAB
     Indication: TYPE IIA HYPERLIPIDAEMIA
     Dates: start: 20170406
  11. PREDNISOLONE. [Concomitant]
     Active Substance: PREDNISOLONE
     Dosage: 1% OP SUS
     Route: 065
  12. CHLORDIAZEPOXIDE HYDROCHLORIDE/CLIDINIUM BROMIDE [Concomitant]
     Dosage: 5-2.5MG
     Route: 065
  13. OMEPRAZOLE. [Concomitant]
     Active Substance: OMEPRAZOLE
     Dosage: 40MG
     Route: 065
  14. AMOXICILLIN/CLAVULANIC ACID [Concomitant]
     Dosage: STRENGTH: 500-125
     Route: 065
  15. LOSARTAN. [Concomitant]
     Active Substance: LOSARTAN
     Dosage: 50MG
     Route: 065

REACTIONS (8)
  - Urine odour abnormal [Unknown]
  - Hypoaesthesia [Not Recovered/Not Resolved]
  - Tremor [Not Recovered/Not Resolved]
  - Dizziness [Not Recovered/Not Resolved]
  - Pain in extremity [Not Recovered/Not Resolved]
  - Night sweats [Unknown]
  - Paraesthesia [Not Recovered/Not Resolved]
  - Fatigue [Not Recovered/Not Resolved]
